FAERS Safety Report 5441304-3 (Version None)
Quarter: 2007Q3

REPORT INFORMATION
  Report Type: 
  Country: None (occurrence: None)
  Receive Date: 20070903
  Receipt Date: 20070820
  Transmission Date: 20080115
  Serious: Yes (Death)
  Sender: FDA-Public Use
  Company Number: PHBS2007FI14317

PATIENT
  Age: 58 Year
  Sex: Female

DRUGS (1)
  1. FLUVASTATIN SODIUM [Suspect]
     Route: 065

REACTIONS (2)
  - ACUTE HEPATIC FAILURE [None]
  - HEPATIC CIRRHOSIS [None]
